FAERS Safety Report 25195064 (Version 2)
Quarter: 2025Q2

REPORT INFORMATION
  Report Type: Spontaneous
  Country: CZ (occurrence: CZ)
  Receive Date: 20250415
  Receipt Date: 20250430
  Transmission Date: 20250716
  Serious: Yes (Other)
  Sender: TERSERA THERAPEUTICS
  Company Number: CZ-TEVA-VS-3314172

PATIENT

DRUGS (17)
  1. GOSERELIN [Suspect]
     Active Substance: GOSERELIN
     Indication: Inflammatory carcinoma of breast stage IV
     Route: 058
  2. ZOLADEX [Suspect]
     Active Substance: GOSERELIN ACETATE
     Indication: Inflammatory carcinoma of breast stage IV
     Route: 065
  3. LETROZOLE [Suspect]
     Active Substance: LETROZOLE
     Indication: Inflammatory carcinoma of breast stage IV
     Route: 065
  4. LETROZOLE [Suspect]
     Active Substance: LETROZOLE
     Indication: Hypothyroidism
     Route: 065
  5. LETROZOLE [Suspect]
     Active Substance: LETROZOLE
     Indication: Breast cancer stage IV
     Route: 065
  6. LETROZOLE [Suspect]
     Active Substance: LETROZOLE
     Route: 065
  7. RIBOCICLIB [Suspect]
     Active Substance: RIBOCICLIB
     Indication: Inflammatory carcinoma of breast stage IV
     Route: 065
  8. RIBOCICLIB [Suspect]
     Active Substance: RIBOCICLIB
     Route: 065
  9. DENOSUMAB [Suspect]
     Active Substance: DENOSUMAB
     Indication: Metastases to bone
     Route: 065
  10. DENOSUMAB [Suspect]
     Active Substance: DENOSUMAB
     Indication: Radiotherapy
     Route: 065
  11. DENOSUMAB [Suspect]
     Active Substance: DENOSUMAB
     Route: 065
  12. AMOXICILLIN\CLAVULANATE POTASSIUM [Concomitant]
     Active Substance: AMOXICILLIN\CLAVULANATE POTASSIUM
     Indication: Antibiotic therapy
     Route: 065
  13. AMOXICILLIN\CLAVULANATE POTASSIUM [Concomitant]
     Active Substance: AMOXICILLIN\CLAVULANATE POTASSIUM
     Route: 065
  14. ACETAMINOPHEN\TRAMADOL HYDROCHLORIDE [Concomitant]
     Active Substance: ACETAMINOPHEN\TRAMADOL HYDROCHLORIDE
     Indication: Analgesic therapy
     Route: 065
  15. ACETAMINOPHEN\TRAMADOL HYDROCHLORIDE [Concomitant]
     Active Substance: ACETAMINOPHEN\TRAMADOL HYDROCHLORIDE
     Indication: Analgesic therapy
     Route: 065
  16. TRAMADOL [Concomitant]
     Active Substance: TRAMADOL
     Indication: Pain
     Route: 065
  17. TRAMADOL [Concomitant]
     Active Substance: TRAMADOL
     Indication: Spinal pain
     Route: 065

REACTIONS (13)
  - Obesity [Unknown]
  - Periodontitis [Unknown]
  - Periodontitis [Unknown]
  - Toxicity to various agents [Recovered/Resolved]
  - Seizure [Recovered/Resolved]
  - Neutropenia [Recovered/Resolved]
  - Hypercholesterolaemia [Unknown]
  - Electrocardiogram QT prolonged [Recovered/Resolved]
  - Lymphoedema [Unknown]
  - Palpitations [Recovered/Resolved]
  - Weight increased [Not Recovered/Not Resolved]
  - Blood triglycerides increased [Unknown]
  - Nausea [Unknown]
